FAERS Safety Report 25232053 (Version 2)
Quarter: 2025Q2

REPORT INFORMATION
  Report Type: Spontaneous
  Country: US (occurrence: US)
  Receive Date: 20250423
  Receipt Date: 20250609
  Transmission Date: 20250717
  Serious: No
  Sender: SANOFI AVENTIS
  Company Number: US-SA-2025SA116999

PATIENT
  Sex: Female

DRUGS (15)
  1. DUPIXENT [Suspect]
     Active Substance: DUPILUMAB
     Indication: Asthma
     Dosage: 300 MG, QOW
     Route: 058
  2. BIOTIN [Concomitant]
     Active Substance: BIOTIN
  3. FAMOTIDINE [Concomitant]
     Active Substance: FAMOTIDINE
  4. GINGER [Concomitant]
     Active Substance: GINGER
  5. LEXAPRO [Concomitant]
     Active Substance: ESCITALOPRAM OXALATE
  6. LUTEIN [Concomitant]
     Active Substance: LUTEIN
  7. MAGNESIUM [Concomitant]
     Active Substance: MAGNESIUM
  8. ROSUVASTATIN [Concomitant]
     Active Substance: ROSUVASTATIN
  9. TRELEGY ELLIPTA [Concomitant]
     Active Substance: FLUTICASONE FUROATE\UMECLIDINIUM BROMIDE\VILANTEROL TRIFENATATE
  10. HERBALS\TURMERIC [Concomitant]
     Active Substance: HERBALS\TURMERIC
  11. VITAMIN B12 [Concomitant]
     Active Substance: CYANOCOBALAMIN
  12. VITAMIN D3 [Concomitant]
     Active Substance: CHOLECALCIFEROL
  13. ZOLPIDEM TARTRATE [Concomitant]
     Active Substance: ZOLPIDEM TARTRATE
  14. Osteo bi-flex ease [Concomitant]
  15. CRANBERRY [Concomitant]
     Active Substance: CRANBERRY

REACTIONS (2)
  - Injection site pain [Not Recovered/Not Resolved]
  - Product use in unapproved indication [Unknown]
